FAERS Safety Report 23118659 (Version 1)
Quarter: 2023Q4

REPORT INFORMATION
  Report Type: Report from Study
  Country: CA (occurrence: CA)
  Receive Date: 20231028
  Receipt Date: 20231028
  Transmission Date: 20240110
  Serious: Yes (Hospitalization)
  Sender: FDA-Public Use
  Company Number: CA-ABBVIE-5465828

PATIENT
  Sex: Female

DRUGS (3)
  1. SKYRIZI [Suspect]
     Active Substance: RISANKIZUMAB-RZAA
     Indication: Crohn^s disease
     Dosage: TIME INTERVAL: TOTAL: FORM STRENGTH UNITS: 600 MILLIGRAM? WEEK 0,
     Route: 042
     Dates: start: 20230811, end: 20230811
  2. SKYRIZI [Suspect]
     Active Substance: RISANKIZUMAB-RZAA
     Indication: Crohn^s disease
     Dosage: TIME INTERVAL: TOTAL: FORM STRENGTH UNITS: 600 MILLIGRAM?WEEK 4
     Route: 042
     Dates: start: 202309, end: 202309
  3. SKYRIZI [Suspect]
     Active Substance: RISANKIZUMAB-RZAA
     Indication: Crohn^s disease
     Dosage: FORM STRENGTH UNITS: 600 MILLIGRAM?WEEK 8
     Route: 042
     Dates: start: 202310

REACTIONS (1)
  - Nephrolithiasis [Recovered/Resolved with Sequelae]

NARRATIVE: CASE EVENT DATE: 20230101
